FAERS Safety Report 8621260-7 (Version None)
Quarter: 2012Q3

REPORT INFORMATION
  Report Type: 
  Country: None (occurrence: None)
  Receive Date: 20120824
  Receipt Date: 20120816
  Transmission Date: 20120928
  Serious: Yes (Disabling, Other)
  Sender: FDA-Public Use
  Company Number: US-009507513-1207USA003583

PATIENT

DRUGS (5)
  1. FUROSEMIDE [Concomitant]
     Dosage: 20 MG, UNK
     Route: 048
  2. LITHIUM CARBONATE [Concomitant]
     Dosage: UNK
  3. LISINOPRIL [Concomitant]
     Dosage: 20 MG, QD
     Route: 048
  4. FOSAMAX [Suspect]
     Indication: OSTEOPOROSIS
     Dosage: 70 MG,QW
     Route: 048
     Dates: start: 20020101, end: 20080301
  5. SIMVASTATIN [Concomitant]
     Dosage: 40 MG, QAM
     Route: 048

REACTIONS (20)
  - BONE DENSITY DECREASED [None]
  - TOOTH EXTRACTION [None]
  - DEVICE FAILURE [None]
  - ILEUS PARALYTIC [None]
  - GOUT [None]
  - ANXIETY [None]
  - CHOLELITHIASIS [None]
  - INTESTINAL DILATATION [None]
  - FRACTURE DELAYED UNION [None]
  - BENIGN BREAST NEOPLASM [None]
  - BLADDER DISORDER [None]
  - HYPERKERATOSIS [None]
  - ATELECTASIS [None]
  - FEMUR FRACTURE [None]
  - DIABETES MELLITUS [None]
  - PHARYNGEAL ERYTHEMA [None]
  - GLOSSITIS [None]
  - WHEEZING [None]
  - BIPOLAR DISORDER [None]
  - PNEUMONIA [None]
